FAERS Safety Report 5119403-5 (Version None)
Quarter: 2006Q3

REPORT INFORMATION
  Report Type: 
  Country: None (occurrence: None)
  Receive Date: 20060928
  Receipt Date: 20060917
  Transmission Date: 20061208
  Serious: Yes (Hospitalization)
  Sender: FDA-Public Use
  Company Number: REM_00237_2006

PATIENT
  Age: 51 Year
  Sex: Female
  Weight: 113.18 kg

DRUGS (8)
  1. REMODULIN [Suspect]
     Indication: PULMONARY HYPERTENSION
     Dosage: 168 NG/KG/MIN CONTINUOUS IV
     Route: 042
     Dates: start: 20030709, end: 20050501
  2. HYDROCORTISONE [Concomitant]
  3. TORSEMIDE [Concomitant]
  4. ALDACTONE [Concomitant]
  5. COUMADIN [Concomitant]
  6. SYNTHROID [Concomitant]
  7. PROTONIX [Concomitant]
  8. ALLEGRA [Concomitant]

REACTIONS (9)
  - BACTERAEMIA [None]
  - CENTRAL LINE INFECTION [None]
  - DYSPNOEA [None]
  - HYPERSENSITIVITY [None]
  - LUNG INFILTRATION [None]
  - NASAL CONGESTION [None]
  - PRODUCTIVE COUGH [None]
  - STENOTROPHOMONAS INFECTION [None]
  - THERAPEUTIC PRODUCT CONTAMINATION [None]
